FAERS Safety Report 4688028-8 (Version None)
Quarter: 2005Q2

REPORT INFORMATION
  Report Type: 
  Country: None (occurrence: None)
  Receive Date: 20050609
  Receipt Date: 20050524
  Transmission Date: 20051028
  Serious: Yes (Death, Hospitalization)
  Sender: FDA-Public Use
  Company Number: 2003144654US

PATIENT
  Age: 47 Year
  Sex: Female
  Weight: 102.9665 kg

DRUGS (6)
  1. CELEBREX [Suspect]
     Indication: RHEUMATOID ARTHRITIS
     Dosage: 400 MG (200 MG, 2 IN 1 D), ORAL
     Route: 048
     Dates: start: 19990413, end: 20000802
  2. ORUVAIL [Suspect]
     Indication: OSTEOARTHRITIS
     Dates: end: 20000101
  3. ARAVA [Suspect]
     Indication: ILL-DEFINED DISORDER
     Dates: end: 20000802
  4. HUMULIN N [Concomitant]
  5. ZOLOFT [Concomitant]
  6. PEPCID [Concomitant]

REACTIONS (16)
  - ACIDOSIS [None]
  - BACTERIAL SEPSIS [None]
  - COAGULOPATHY [None]
  - COLITIS ISCHAEMIC [None]
  - DIALYSIS [None]
  - DUODENAL ULCER PERFORATION [None]
  - HYPERSENSITIVITY [None]
  - HYPERTENSION [None]
  - HYPOTENSION [None]
  - MULTI-ORGAN FAILURE [None]
  - NEPHRITIS INTERSTITIAL [None]
  - RENAL FAILURE ACUTE [None]
  - RENAL FAILURE CHRONIC [None]
  - RENAL INTERSTITIAL FIBROSIS [None]
  - THROMBOCYTOPENIA [None]
  - TOXIC EPIDERMAL NECROLYSIS [None]
